FAERS Safety Report 8796010 (Version 1)
Quarter: 2012Q4

REPORT INFORMATION
  Report Type: 
  Country: US (occurrence: US)
  Receive Date: 20120919
  Receipt Date: 20120919
  Transmission Date: 20130627
  Serious: Yes (Hospitalization, Disabling, Other)
  Sender: FDA-Public Use
  Company Number: US-CELGENEUS-163-21880-12063564

PATIENT
  Age: 75 None
  Sex: Male
  Weight: 84.8 kg

DRUGS (43)
  1. REVLIMID [Suspect]
     Indication: MYELODYSPLASTIC SYNDROME
     Dosage: 3.75 Milligram
     Route: 048
     Dates: start: 20120618
  2. REVLIMID [Suspect]
     Dosage: 3.75 Milligram
     Route: 048
     Dates: start: 20120720
  3. ACYCLOVIR [Concomitant]
     Indication: DRUG USE FOR UNKNOWN INDICATION
     Dosage: 400 Milligram
     Route: 065
  4. COMBIVENT [Concomitant]
     Indication: DRUG USE FOR UNKNOWN INDICATION
     Dosage: 2 puffs
     Route: 055
  5. ALLOPURINOL [Concomitant]
     Indication: DRUG USE FOR UNKNOWN INDICATION
     Dosage: 200 Milligram
     Route: 048
  6. BUDESONIDE [Concomitant]
     Indication: DRUG USE FOR UNKNOWN INDICATION
     Dosage: 180 Milligram
     Route: 055
  7. FERROUS SULFATE [Concomitant]
     Indication: DRUG USE FOR UNKNOWN INDICATION
     Dosage: 975 Milligram
     Route: 048
  8. FOLIC ACID [Concomitant]
     Indication: DRUG USE FOR UNKNOWN INDICATION
     Dosage: 1 Milligram
     Route: 048
  9. FUROSEMIDE [Concomitant]
     Indication: DRUG USE FOR UNKNOWN INDICATION
     Dosage: 20 Milligram
     Route: 041
  10. GABAPENTIN [Concomitant]
     Indication: NEUROPATHY
     Dosage: 1200 Milligram
     Route: 048
  11. GABAPENTIN [Concomitant]
     Dosage: 2400 Milligram
     Route: 048
  12. MAGNESIUM OXIDE [Concomitant]
     Indication: DRUG USE FOR UNKNOWN INDICATION
     Dosage: 400 Milligram
     Route: 065
  13. MEGACE [Concomitant]
     Indication: DRUG USE FOR UNKNOWN INDICATION
     Dosage: 400 Milligram
     Route: 065
  14. METOCLOPRAMIDE [Concomitant]
     Indication: DRUG USE FOR UNKNOWN INDICATION
     Dosage: 20 Milligram
     Route: 065
  15. OXYBUTYNIN [Concomitant]
     Indication: DRUG USE FOR UNKNOWN INDICATION
     Dosage: 10 Milligram
     Route: 065
  16. MULTIVITAMINS [Concomitant]
     Indication: DRUG USE FOR UNKNOWN INDICATION
     Route: 065
  17. PREDNISONE [Concomitant]
     Indication: DRUG USE FOR UNKNOWN INDICATION
     Dosage: 20 Milligram
     Route: 065
  18. SERTRALINE [Concomitant]
     Indication: DRUG USE FOR UNKNOWN INDICATION
     Dosage: 100 Milligram
     Route: 065
  19. FLOMAX [Concomitant]
     Indication: DRUG USE FOR UNKNOWN INDICATION
     Dosage: .4 Milligram
     Route: 065
  20. SULFAMETHOXAZOLE/TRIMETHOPRIM DS [Concomitant]
     Indication: PROPHYLAXIS
     Route: 048
  21. BLOOD [Concomitant]
     Indication: DRUG USE FOR UNKNOWN INDICATION
     Route: 041
  22. DUONEB [Concomitant]
     Indication: DRUG USE FOR UNKNOWN INDICATION
     Route: 055
  23. ASCORBIC ACID + NIFEREX [Concomitant]
     Indication: DRUG USE FOR UNKNOWN INDICATION
     Dosage: 150 Milligram
     Route: 065
  24. SYMBICORT [Concomitant]
     Indication: DRUG USE FOR UNKNOWN INDICATION
     Route: 055
  25. NIASPAN ER [Concomitant]
     Indication: DRUG USE FOR UNKNOWN INDICATION
     Dosage: 500 Milligram
     Route: 048
  26. PANTOPRAZOLE [Concomitant]
     Indication: DRUG USE FOR UNKNOWN INDICATION
     Dosage: 40 Milligram
     Route: 048
  27. CALCITONIN [Concomitant]
     Indication: DRUG USE FOR UNKNOWN INDICATION
     Dosage: 800 IU (International Unit)
     Route: 058
  28. CALCITONIN [Concomitant]
     Dosage: 200 units
     Route: 058
  29. FERROUS GLUCONATE [Concomitant]
     Indication: DRUG USE FOR UNKNOWN INDICATION
     Dosage: 975 Milligram
     Route: 048
  30. MEGESTROL [Concomitant]
     Indication: DRUG USE FOR UNKNOWN INDICATION
     Dosage: 40 Milligram
     Route: 048
  31. ZOSYN [Concomitant]
     Indication: DRUG USE FOR UNKNOWN INDICATION
     Dosage: 13.5 Milligram
     Route: 048
  32. VESICARE [Concomitant]
     Indication: DRUG USE FOR UNKNOWN INDICATION
     Dosage: 10 Milligram
     Route: 048
  33. ZOLPIDEM [Concomitant]
     Indication: SLEEP DISORDER
     Dosage: 5 Milligram
     Route: 048
  34. PROCRIT [Concomitant]
     Indication: DRUG USE FOR UNKNOWN INDICATION
     Dosage: 40K
     Route: 065
     Dates: start: 20110125
  35. IVIG [Concomitant]
     Indication: DRUG USE FOR UNKNOWN INDICATION
     Route: 065
     Dates: start: 20110201, end: 20120606
  36. IVIG [Concomitant]
     Route: 065
     Dates: start: 20120228, end: 20120424
  37. NEUPOGEN [Concomitant]
     Indication: DRUG USE FOR UNKNOWN INDICATION
     Dosage: 300 Microgram
     Route: 065
     Dates: start: 20110805, end: 20120221
  38. RITUXAN [Concomitant]
     Indication: DRUG USE FOR UNKNOWN INDICATION
     Route: 065
     Dates: start: 20111205, end: 20120608
  39. AREDIA [Concomitant]
     Indication: DRUG USE FOR UNKNOWN INDICATION
     Route: 065
     Dates: start: 20120725, end: 20120822
  40. ASA [Concomitant]
     Indication: DRUG USE FOR UNKNOWN INDICATION
     Dosage: 81 Milligram
     Route: 065
  41. MIRTAZAPINE [Concomitant]
     Indication: DRUG USE FOR UNKNOWN INDICATION
  42. OXYCODONE /ACETAMINOPHEN [Concomitant]
     Indication: DRUG USE FOR UNKNOWN INDICATION
     Route: 065
  43. GUAIFENESIN AND CODEINE [Concomitant]
     Indication: DRUG USE FOR UNKNOWN INDICATION
     Route: 065

REACTIONS (6)
  - Hypercalcaemia [Unknown]
  - Pancytopenia [Unknown]
  - Diarrhoea [Recovered/Resolved]
  - Decreased appetite [Recovering/Resolving]
  - Fatigue [Recovering/Resolving]
  - Arthralgia [Recovering/Resolving]
